FAERS Safety Report 6738915-1 (Version None)
Quarter: 2010Q2

REPORT INFORMATION
  Report Type: 
  Country: None (occurrence: None)
  Receive Date: 20100524
  Receipt Date: 20100520
  Transmission Date: 20101027
  Serious: Yes (Hospitalization)
  Sender: FDA-Public Use
  Company Number: FR-MERCK-1005FRA00028

PATIENT
  Age: 60 Year
  Sex: Female

DRUGS (5)
  1. JANUVIA [Suspect]
     Indication: TYPE 2 DIABETES MELLITUS
     Route: 048
     Dates: start: 20091001
  2. KARDEGIC [Concomitant]
     Route: 048
  3. METFORMIN HYDROCHLORIDE [Concomitant]
     Indication: TYPE 2 DIABETES MELLITUS
     Route: 048
     Dates: start: 20091001
  4. PERINDOPRIL ARGININE [Suspect]
     Indication: HYPERTENSION
     Route: 048
     Dates: start: 20090601, end: 20100101
  5. ZOCOR [Concomitant]
     Route: 048

REACTIONS (2)
  - ANGIOEDEMA [None]
  - DRUG INTERACTION [None]
